FAERS Safety Report 7310574-9 (Version None)
Quarter: 2011Q1

REPORT INFORMATION
  Report Type: 
  Country: None (occurrence: None)
  Receive Date: 20110224
  Receipt Date: 20100202
  Transmission Date: 20110831
  Serious: No
  Sender: FDA-Public Use
  Company Number: US-BRISTOL-MYERS SQUIBB COMPANY-14962849

PATIENT
  Age: 53 Year
  Sex: Male

DRUGS (2)
  1. METFORMIN HCL [Suspect]
  2. LANTUS [Concomitant]
     Indication: TYPE 2 DIABETES MELLITUS
     Dosage: 35 UNITS; PREVIOUSLY ON 20 UNITS
     Dates: start: 20091101

REACTIONS (1)
  - ABDOMINAL PAIN UPPER [None]
